FAERS Safety Report 8433376-9 (Version None)
Quarter: 2012Q2

REPORT INFORMATION
  Report Type: 
  Country: None (occurrence: None)
  Receive Date: 20120613
  Receipt Date: 20120606
  Transmission Date: 20120825
  Serious: Yes (Hospitalization)
  Sender: FDA-Public Use
  Company Number: CN-MERCK-1206USA01113

PATIENT
  Age: 65 Year
  Sex: Male

DRUGS (2)
  1. PRIMAXIN [Suspect]
     Route: 051
     Dates: start: 20120601, end: 20120601
  2. PRIMAXIN [Suspect]
     Route: 051
     Dates: start: 20120401

REACTIONS (4)
  - COUGH [None]
  - DYSPHAGIA [None]
  - PRODUCTIVE COUGH [None]
  - PLATELET COUNT DECREASED [None]
